FAERS Safety Report 9725271 (Version 1)
Quarter: 2013Q4

REPORT INFORMATION
  Report Type: Spontaneous
  Country: US (occurrence: None)
  Receive Date: 20131202
  Receipt Date: 20131202
  Transmission Date: 20140711
  Serious: No
  Sender: FDA-Public Use
  Company Number: None

PATIENT
  Age: 52 Year
  Sex: Female

DRUGS (1)
  1. ESTRADIOL [Suspect]
     Indication: BLOOD OESTROGEN DECREASED
     Dosage: ONE WEEKLY APPLIED TO A SURFACE?USUALLY THE SKIN
     Dates: start: 20130923, end: 20131028

REACTIONS (1)
  - Hypersensitivity [None]
